FAERS Safety Report 12468014 (Version 1)
Quarter: 2016Q2

REPORT INFORMATION
  Report Type: Spontaneous
  Country: US (occurrence: US)
  Receive Date: 20160615
  Receipt Date: 20160615
  Transmission Date: 20160815
  Serious: No
  Sender: FDA-Public Use
  Company Number: PHEH2016US014768

PATIENT
  Sex: Male

DRUGS (1)
  1. VOTRIENT [Suspect]
     Active Substance: PAZOPANIB HYDROCHLORIDE
     Indication: RESPIRATORY DISORDER
     Dosage: 4 DF, QD
     Route: 048
     Dates: start: 20160602

REACTIONS (4)
  - Confusional state [Unknown]
  - Headache [Unknown]
  - Product use issue [Unknown]
  - Nausea [Unknown]
